FAERS Safety Report 11603907 (Version 1)
Quarter: 2015Q4

REPORT INFORMATION
  Report Type: Spontaneous
  Country: US (occurrence: US)
  Receive Date: 20151007
  Receipt Date: 20151007
  Transmission Date: 20160304
  Serious: Yes (Other)
  Sender: FDA-Public Use
  Company Number: US-FRESENIUS KABI-FK201504701

PATIENT
  Age: 31 Year
  Sex: Female

DRUGS (2)
  1. COLISTIMETHATE (MANUFACTURER UNKNOWN) [Suspect]
     Active Substance: COLISTIMETHATE SODIUM
     Indication: OSTEOMYELITIS BACTERIAL
     Route: 042
  2. VANCOMYCIN (MANUFACTURER UNKNOWN) [Suspect]
     Active Substance: VANCOMYCIN
     Indication: OSTEOMYELITIS BACTERIAL
     Route: 042

REACTIONS (5)
  - Neurotoxicity [Unknown]
  - Acute respiratory failure [Recovering/Resolving]
  - Respiratory arrest [Unknown]
  - Hypotension [Recovering/Resolving]
  - Acute kidney injury [Unknown]
